FAERS Safety Report 21185286 (Version 3)
Quarter: 2023Q2

REPORT INFORMATION
  Report Type: Spontaneous
  Country: US (occurrence: US)
  Receive Date: 20220808
  Receipt Date: 20230421
  Transmission Date: 20230721
  Serious: No
  Sender: FDA-Public Use
  Company Number: US-BRISTOL-MYERS SQUIBB COMPANY-2022-086422

PATIENT
  Age: 75 Year
  Sex: Female

DRUGS (2)
  1. REVLIMID [Suspect]
     Active Substance: LENALIDOMIDE
     Indication: Plasma cell myeloma
     Dosage: 1 CAPSULE (5 MILLIGRAM) EVERY DAY ON DAYS 1-28 OF A 28 DAY CYCLE
     Route: 048
     Dates: start: 20210824
  2. REVLIMID [Suspect]
     Active Substance: LENALIDOMIDE
     Dosage: FREQ: EVERY DAY WITH A FULL GLASS OF WATER ON DAYS 1-28 OF A 28 DAY CYCLE
     Route: 048

REACTIONS (2)
  - Product dose omission issue [Unknown]
  - Product prescribing issue [Unknown]
